FAERS Safety Report 13960130 (Version 2)
Quarter: 2017Q4

REPORT INFORMATION
  Report Type: Spontaneous
  Country: US (occurrence: US)
  Receive Date: 20170911
  Receipt Date: 20171025
  Transmission Date: 20180320
  Serious: Yes (Hospitalization)
  Sender: FDA-Public Use
  Company Number: US-DSJP-DSU-2017-136186

PATIENT

DRUGS (2)
  1. BENICAR HCT [Suspect]
     Active Substance: HYDROCHLOROTHIAZIDE\OLMESARTAN MEDOXOMIL
     Indication: HYPERTENSION
     Dosage: 40/25 MG, QD
     Route: 048
     Dates: end: 20131218
  2. BENICAR [Suspect]
     Active Substance: OLMESARTAN MEDOXOMIL
     Indication: HYPERTENSION
     Dosage: 40 MG, QD
     Route: 048
     Dates: start: 20140603, end: 2015

REACTIONS (9)
  - Colitis microscopic [Unknown]
  - Gastrooesophageal reflux disease [Unknown]
  - Liver function test increased [Unknown]
  - Haemorrhoids [Unknown]
  - Diverticulum [Unknown]
  - Polyp [Recovered/Resolved]
  - Electrolyte imbalance [Recovered/Resolved]
  - Gastroenteritis [Recovered/Resolved]
  - Gastritis [Unknown]

NARRATIVE: CASE EVENT DATE: 201311
